FAERS Safety Report 5679257-5 (Version None)
Quarter: 2008Q1

REPORT INFORMATION
  Report Type: 
  Country: None (occurrence: None)
  Receive Date: 20080321
  Receipt Date: 20080307
  Transmission Date: 20080703
  Serious: Yes (Life-Threatening, Hospitalization)
  Sender: FDA-Public Use
  Company Number: RB-0374-2008

PATIENT
  Age: 54 Year
  Sex: Male

DRUGS (3)
  1. SUBOXONE [Suspect]
     Indication: DRUG DEPENDENCE
     Dosage: 12 MG QD CALLER HAS BBEN ON MEDICATION APPROXIMATELY ONE YEAR SUBLINGUAL
     Route: 060
     Dates: start: 20070101
  2. WELLBUTRIN [Concomitant]
  3. SINEQUAN(DOXEPIEN HYDROCHLORIDE) [Concomitant]

REACTIONS (1)
  - HEART RATE DECREASED [None]
